FAERS Safety Report 6141253-1 (Version None)
Quarter: 2009Q2

REPORT INFORMATION
  Report Type: 
  Country: None (occurrence: None)
  Receive Date: 20090402
  Receipt Date: 20090324
  Transmission Date: 20091009
  Serious: Yes (Other)
  Sender: FDA-Public Use
  Company Number: US-WATSON-2009-01635

PATIENT
  Sex: Male

DRUGS (7)
  1. FENTANYL-75 [Suspect]
     Indication: NEURALGIA
     Dosage: 1 PATCH, Q 48 HOURS
     Route: 062
     Dates: start: 20090306
  2. FENTANYL-75 [Suspect]
     Indication: NECK PAIN
     Dosage: 1 PATCH, Q 48 HOURS
     Route: 062
     Dates: start: 20090101, end: 20090305
  3. FENTANYL-75 [Suspect]
     Indication: BONE PAIN
  4. FENTANYL-75 [Suspect]
     Indication: ARTHRITIS
  5. SYNTHROID [Concomitant]
     Indication: THYROID DISORDER
     Dosage: 88 MCG, DAILY
     Route: 048
     Dates: start: 19890101
  6. DIAZEPAM [Concomitant]
     Indication: ANXIETY
     Dosage: 10 MG, QID
     Route: 048
     Dates: start: 19690101
  7. SIMVASTATIN [Concomitant]
     Indication: BLOOD CHOLESTEROL INCREASED
     Dosage: 1/2 TAB, DAILY
     Route: 048
     Dates: start: 20081201

REACTIONS (8)
  - BLOOD CHOLESTEROL INCREASED [None]
  - CONFUSIONAL STATE [None]
  - CONVULSION [None]
  - DRUG EFFECT INCREASED [None]
  - LETHARGY [None]
  - MOOD ALTERED [None]
  - MUSCLE TWITCHING [None]
  - NERVOUSNESS [None]
